FAERS Safety Report 14954823 (Version 1)
Quarter: 2018Q2

REPORT INFORMATION
  Report Type: Spontaneous
  Country: ES (occurrence: ES)
  Receive Date: 20180530
  Receipt Date: 20180530
  Transmission Date: 20180711
  Serious: Yes (Other)
  Sender: FDA-Public Use
  Company Number: ES-TEVA-2018-ES-898483

PATIENT
  Age: 69 Year
  Sex: Female
  Weight: 63 kg

DRUGS (5)
  1. SYMBICORT [Concomitant]
     Active Substance: BUDESONIDE\FORMOTEROL FUMARATE DIHYDRATE
     Dosage: 1 DOSAGE FORMS DAILY;
     Route: 065
     Dates: start: 20180322
  2. EUCREAS 50 MG/850 MG COMPRIMIDOS RECUBIERTOS CON PELICULA, 60 COMPRIMI [Concomitant]
     Active Substance: METFORMIN HYDROCHLORIDE\VILDAGLIPTIN
     Route: 065
     Dates: start: 20140310
  3. DAONIL 5 MG COMPRIMIDOS , 100 COMPRIMIDOS [Concomitant]
     Dosage: 1 DOSAGE FORMS DAILY;
     Dates: start: 20121107
  4. XALACOM 50 MICROGRAMOS/ML + 5 MG/ML COLIRIO EN SOLUCION , 1 FRASCO DE [Concomitant]
     Dosage: 1 DOSAGE FORMS DAILY;
     Route: 065
     Dates: start: 20121108
  5. IBUPROFENO 600 MG COMPRIMIDO [Suspect]
     Active Substance: IBUPROFEN
     Indication: PHARYNGITIS
     Route: 048
     Dates: start: 20180328, end: 20180329

REACTIONS (1)
  - Tongue oedema [Not Recovered/Not Resolved]

NARRATIVE: CASE EVENT DATE: 20180329
